FAERS Safety Report 24994286 (Version 1)
Quarter: 2025Q1

REPORT INFORMATION
  Report Type: Spontaneous
  Country: AU (occurrence: AU)
  Receive Date: 20250221
  Receipt Date: 20250221
  Transmission Date: 20250408
  Serious: Yes (Other)
  Sender: ACCORD
  Company Number: None

PATIENT
  Age: 58 Year

DRUGS (2)
  1. CARBOPLATIN [Suspect]
     Active Substance: CARBOPLATIN
     Indication: Product used for unknown indication
  2. ASCORBIC ACID PLUS GLUCOSE [Concomitant]

REACTIONS (4)
  - Altered state of consciousness [Unknown]
  - Hypotension [Unknown]
  - Hypoxia [Unknown]
  - Pruritus [Unknown]
